FAERS Safety Report 6355653-8 (Version None)
Quarter: 2009Q3

REPORT INFORMATION
  Report Type: 
  Country: None (occurrence: None)
  Receive Date: 20090910
  Receipt Date: 20090828
  Transmission Date: 20100115
  Serious: No
  Sender: FDA-Public Use
  Company Number: 007415

PATIENT
  Sex: 0

DRUGS (1)
  1. PLETAL [Suspect]
     Indication: CAROTID ARTERY STENOSIS
     Dosage: ORAL
     Route: 048

REACTIONS (2)
  - CAROTID ARTERY OCCLUSION [None]
  - OFF LABEL USE [None]
